FAERS Safety Report 9301682 (Version 1)
Quarter: 2012Q4

REPORT INFORMATION
  Report Type: Spontaneous
  Country: GB (occurrence: None)
  Receive Date: 20121109
  Receipt Date: 20121109
  Transmission Date: 20130627
  Serious: Yes (Death, Hospitalization)
  Sender: FDA-Public Use
  Company Number: 2011S1000610

PATIENT
  Sex: Male

DRUGS (1)
  1. CUBICIN (DAPTOMYCIN) [Suspect]

REACTIONS (7)
  - Terminal state [None]
  - General physical health deterioration [None]
  - Acute myeloid leukaemia [None]
  - Arthritis bacterial [None]
  - Intervertebral discitis [None]
  - Bacterial infection [None]
  - Neutropenia [None]
